FAERS Safety Report 18380268 (Version 2)
Quarter: 2021Q1

REPORT INFORMATION
  Report Type: Not Available
  Country: US (occurrence: US)
  Receive Date: 20201013
  Receipt Date: 20210105
  Transmission Date: 20210419
  Serious: No
  Sender: FDA-Public Use
  Company Number: US-NEUROCRINE BIOSCIENCES INC.-2020NBI03711

PATIENT
  Age: 72 Year
  Sex: Male

DRUGS (1)
  1. INGREZZA [Suspect]
     Active Substance: VALBENAZINE
     Indication: TARDIVE DYSKINESIA
     Route: 048
     Dates: start: 20190111

REACTIONS (5)
  - Gait disturbance [Recovering/Resolving]
  - Somnolence [Unknown]
  - Muscular weakness [Unknown]
  - Fatigue [Unknown]
  - Balance disorder [Unknown]
